FAERS Safety Report 10404638 (Version 1)
Quarter: 2014Q2

REPORT INFORMATION
  Report Type: Spontaneous
  Country: US (occurrence: None)
  Receive Date: 20140530
  Receipt Date: 20140530
  Transmission Date: 20141212
  Serious: Yes (Other)
  Sender: FDA-Public Use
  Company Number: 399934

PATIENT
  Sex: Female

DRUGS (2)
  1. ACTIVELLA [Suspect]
     Indication: MENOPAUSAL SYMPTOMS
     Route: 048
     Dates: start: 200505, end: 201202
  2. PREMPHASE [Suspect]
     Indication: MENOPAUSAL SYMPTOMS

REACTIONS (1)
  - Breast cancer [None]
